FAERS Safety Report 5430935-2 (Version None)
Quarter: 2007Q3

REPORT INFORMATION
  Report Type: 
  Country: None (occurrence: None)
  Receive Date: 20070731
  Receipt Date: 20070413
  Transmission Date: 20080115
  Serious: No
  Sender: FDA-Public Use
  Company Number: US200705002521

PATIENT
  Age: 48 Year
  Sex: Female

DRUGS (4)
  1. BYETTA [Suspect]
     Indication: TYPE 2 DIABETES MELLITUS
     Dosage: 5 MG, 2/D, SUBCUTANEOUS
     Route: 058
     Dates: start: 20070407
  2. AMARYL [Concomitant]
  3. GLUCOPHAGE [Concomitant]
  4. FERROSULFAT (FERROUS SULFATE) [Concomitant]

REACTIONS (10)
  - ASPIRATION [None]
  - ASTHENIA [None]
  - BLOOD GLUCOSE INCREASED [None]
  - CHEST DISCOMFORT [None]
  - HYPERHIDROSIS [None]
  - INJECTION SITE PAIN [None]
  - LUNG INFECTION [None]
  - MALAISE [None]
  - NAUSEA [None]
  - PRODUCTIVE COUGH [None]
